FAERS Safety Report 18520756 (Version 6)
Quarter: 2021Q1

REPORT INFORMATION
  Report Type: Report from Study
  Country: KR (occurrence: KR)
  Receive Date: 20201119
  Receipt Date: 20210104
  Transmission Date: 20210419
  Serious: Yes (Hospitalization)
  Sender: FDA-Public Use
  Company Number: KR-CELLTRION INC.-2020KR032281

PATIENT

DRUGS (49)
  1. GASTER [CROMOGLICATE SODIUM] [Concomitant]
     Indication: PREMEDICATION
     Dosage: 20 MILLIGRAM
     Route: 042
     Dates: start: 20200824
  2. MAGMIL [Concomitant]
     Active Substance: MAGNESIUM HYDROXIDE
     Indication: CONSTIPATION
     Dosage: 500 MG
     Route: 048
     Dates: start: 20201113, end: 20201113
  3. CODAEWON FORTE [Concomitant]
     Indication: PROPHYLAXIS
     Dosage: 20 ML
     Route: 048
     Dates: start: 20201208, end: 20201208
  4. LEGALON [Concomitant]
     Active Substance: DIETARY SUPPLEMENT\HERBALS\MILK THISTLE
     Indication: HEPATITIS C
  5. DEXTROSE 5% [Concomitant]
     Active Substance: DEXTROSE
     Indication: PREMEDICATION
     Dosage: 100 ML
     Route: 042
     Dates: start: 20200824
  6. DEXAMETHASONE. [Concomitant]
     Active Substance: DEXAMETHASONE
     Indication: PREMEDICATION
     Dosage: 20 MILLIGRAM
     Route: 042
     Dates: start: 20200824
  7. LYRICA [Concomitant]
     Active Substance: PREGABALIN
     Indication: NEUROPATHY PERIPHERAL
     Dosage: 2 DOSAGE FORM
     Route: 048
     Dates: start: 20201005, end: 20201118
  8. SOLETON [Concomitant]
     Active Substance: ZALTOPROFEN
     Indication: OEDEMA PERIPHERAL
     Dosage: 3 DOSAGE FORM
     Route: 048
     Dates: start: 20201006, end: 20201105
  9. HERZUMA [Suspect]
     Active Substance: TRASTUZUMAB-PKRB
     Indication: TRANSITIONAL CELL CARCINOMA
     Dosage: 600 MILLIGRAM (C1D1)
     Route: 042
     Dates: start: 20200824, end: 20200824
  10. DILATREND [Concomitant]
     Active Substance: CARVEDILOL
     Indication: HYPERTENSION
     Dosage: 6.25 MILLIGRAM
     Route: 048
     Dates: start: 2010
  11. THRUPAS OD [Concomitant]
     Indication: URINARY INCONTINENCE
     Dosage: 8 MILLIGRAM
     Route: 048
     Dates: start: 20200512, end: 20201004
  12. MAGO [Concomitant]
     Indication: PROPHYLAXIS
     Dosage: 500 MILLIGRAM
     Route: 048
     Dates: start: 20200811, end: 20201028
  13. SELBEX [Concomitant]
     Active Substance: TEPRENONE
     Indication: PROPHYLAXIS
     Dosage: 3 DOSAGE FORM
     Route: 048
     Dates: start: 20201006, end: 20201105
  14. DEXTROSE  5% AND SODIUM CHLORIDE INJECTION [Concomitant]
     Indication: SUPPORTIVE CARE
     Dosage: 500 ML
     Route: 042
     Dates: start: 20201109, end: 20201109
  15. PACLITAXEL. [Suspect]
     Active Substance: PACLITAXEL
     Dosage: 250 MG
     Route: 042
     Dates: start: 20201119
  16. URSA [Concomitant]
     Active Substance: URSODIOL
     Indication: HEPATITIS C
  17. LASIX [Concomitant]
     Active Substance: FUROSEMIDE
     Indication: HYPERTENSION
     Dosage: 40 MILLIGRAM
     Route: 048
     Dates: start: 2010
  18. NORMAL SALINE [Concomitant]
     Active Substance: SODIUM CHLORIDE
     Indication: SUPPORTIVE CARE
     Dosage: 1000 ML
     Route: 042
     Dates: start: 20201108, end: 20201109
  19. SYNACTHEN [DOXYCYCLINE HYDROCHLORIDE] [Concomitant]
     Active Substance: DOXYCYCLINE HYDROCHLORIDE
     Indication: BLOOD CORTISOL
     Dosage: 250 MICROGRAM
     Route: 042
     Dates: start: 20201207, end: 20201207
  20. KASHUT [Concomitant]
     Indication: SUPPORTIVE CARE
     Dosage: 80 ML
     Route: 048
     Dates: start: 20201208, end: 20201208
  21. DIOVAN [Concomitant]
     Active Substance: VALSARTAN
     Indication: HYPERTENSION
     Dosage: 40 MG
     Route: 048
     Dates: start: 20201212
  22. HERZUMA [Suspect]
     Active Substance: TRASTUZUMAB-PKRB
     Dosage: 450 MILLIGRAM (C2D1)
     Route: 042
     Dates: start: 20200914
  23. DEXTROSE 5% [Concomitant]
     Active Substance: DEXTROSE
     Indication: SUPPORTIVE CARE
     Dosage: 500 ML
     Route: 042
     Dates: start: 20201108, end: 20201108
  24. LOXPERIN [Concomitant]
     Indication: MYALGIA
     Dosage: 1 DOSAGE FORM
     Route: 048
     Dates: start: 20200827, end: 20200828
  25. WONTRAN SEMI [Concomitant]
     Indication: MYALGIA
     Dosage: 1 DOSAGE FORM
     Route: 048
     Dates: start: 20200828, end: 20200902
  26. CEFRADINE [Concomitant]
     Active Substance: CEPHRADINE
     Indication: WOUND TREATMENT
     Dosage: 3 DOSAGE FORM
     Route: 048
     Dates: start: 20200914, end: 20200921
  27. ULTRACET [Concomitant]
     Active Substance: ACETAMINOPHEN\TRAMADOL HYDROCHLORIDE
     Indication: TESTICULAR PAIN
     Dosage: 1 DOSAGE FORM
     Route: 048
     Dates: start: 20200914
  28. DEXTROSE  5% AND SODIUM CHLORIDE INJECTION [Concomitant]
     Dosage: 1000 ML
     Route: 042
     Dates: start: 20201109, end: 20201110
  29. DUPHALAC EASY [Concomitant]
     Active Substance: LACTULOSE
     Indication: CONSTIPATION
     Dosage: UNK
     Route: 048
     Dates: start: 20201213, end: 20201213
  30. KASHUT [Concomitant]
     Indication: PROPHYLAXIS
     Dosage: 120 ML
     Route: 048
     Dates: start: 20201209, end: 20201209
  31. LASIX [Concomitant]
     Active Substance: FUROSEMIDE
     Indication: PROPHYLAXIS
     Dosage: 20 MG
     Route: 042
     Dates: start: 20201210, end: 20201211
  32. HERZUMA [Suspect]
     Active Substance: TRASTUZUMAB-PKRB
     Dosage: 450 MILLIGRAM (C3D1)
     Route: 042
     Dates: start: 20201005
  33. PACLITAXEL. [Suspect]
     Active Substance: PACLITAXEL
     Indication: TRANSITIONAL CELL CARCINOMA
     Dosage: 330 MILLIGRAM
     Route: 042
     Dates: start: 20200824, end: 20201026
  34. URSA [Concomitant]
     Active Substance: URSODIOL
     Indication: ADJUVANT THERAPY
     Dosage: 200 MILLIGRAM
     Route: 048
     Dates: start: 2004
  35. ASPIRIN PROTECT [Concomitant]
     Active Substance: ASPIRIN
     Indication: HYPERTENSION
     Dosage: 100 MILLIGRAM
     Route: 048
     Dates: start: 2010
  36. TAMADOL [Concomitant]
     Active Substance: TRAMADOL HYDROCHLORIDE
     Indication: MYALGIA
     Dosage: 50 MILLIGRAM
     Route: 030
     Dates: start: 20200827, end: 20200827
  37. PHAZYME 95 [Concomitant]
     Indication: PROPHYLAXIS
     Dosage: 1 DOSAGE FORM
     Route: 048
     Dates: start: 20201212, end: 20201212
  38. HERZUMA [Suspect]
     Active Substance: TRASTUZUMAB-PKRB
     Dosage: 450 MILLIGRAM (C2D1)
     Route: 042
     Dates: start: 20200914
  39. HERZUMA [Suspect]
     Active Substance: TRASTUZUMAB-PKRB
     Dosage: 450 MG
     Route: 042
     Dates: start: 20201119
  40. LEGALON [Concomitant]
     Active Substance: DIETARY SUPPLEMENT\HERBALS\MILK THISTLE
     Indication: ADJUVANT THERAPY
     Dosage: 1 DOSAGE FORM
     Route: 048
     Dates: start: 2004
  41. PROMAC [Concomitant]
     Active Substance: NITROFURANTOIN
     Indication: MYALGIA
     Dosage: 1 DOSAGE FORM
     Route: 048
     Dates: start: 20200828, end: 20200902
  42. HERZUMA [Suspect]
     Active Substance: TRASTUZUMAB-PKRB
     Dosage: 450 MILLIGRAM (C4D1)
     Route: 042
     Dates: start: 20201026
  43. BETMIGA PR [Concomitant]
     Indication: URINARY INCONTINENCE
     Dosage: 50 MILLIGRAM
     Route: 048
     Dates: start: 20191111, end: 20201004
  44. PENIRAMIN [Concomitant]
     Indication: PREMEDICATION
     Dosage: 4 MILLIGRAM
     Route: 042
     Dates: start: 20200824
  45. MEDIAVEN L [Concomitant]
     Indication: OEDEMA PERIPHERAL
     Dosage: 3 DOSAGE FORM
     Route: 048
     Dates: start: 20201006, end: 20201105
  46. MAGMIL [Concomitant]
     Active Substance: MAGNESIUM HYDROXIDE
     Dosage: 2 TAB
     Route: 048
     Dates: start: 20201114
  47. CIPLOXCIN [Concomitant]
     Indication: PROPHYLAXIS
     Dosage: 250 MG
     Route: 048
     Dates: start: 20201116
  48. SEROQUEL [Concomitant]
     Active Substance: QUETIAPINE FUMARATE
     Indication: PROPHYLAXIS
     Dosage: 25 MG
     Route: 048
     Dates: start: 20201209
  49. DULCOLAX S [Concomitant]
     Indication: PROPHYLAXIS
     Dosage: 1 DOSAGE FORM
     Route: 048
     Dates: start: 20200811, end: 20201028

REACTIONS (3)
  - Urinary tract infection [Recovered/Resolved]
  - Off label use [Unknown]
  - Urosepsis [Recovered/Resolved]

NARRATIVE: CASE EVENT DATE: 20201108
